FAERS Safety Report 13636672 (Version 1)
Quarter: 2017Q2

REPORT INFORMATION
  Report Type: Spontaneous
  Country: BR (occurrence: BR)
  Receive Date: 20170609
  Receipt Date: 20170609
  Transmission Date: 20170830
  Serious: Yes (Death, Other)
  Sender: FDA-Public Use
  Company Number: BR-ROCHE-1945118

PATIENT
  Age: 31 Year
  Sex: Female

DRUGS (5)
  1. MABTHERA [Concomitant]
     Active Substance: RITUXIMAB
     Route: 065
  2. ACTEMRA [Suspect]
     Active Substance: TOCILIZUMAB
     Indication: RHEUMATOID ARTHRITIS
     Route: 042
  3. CIMZIA [Concomitant]
     Active Substance: CERTOLIZUMAB PEGOL
  4. HUMIRA [Concomitant]
     Active Substance: ADALIMUMAB
  5. ENBREL [Concomitant]
     Active Substance: ETANERCEPT

REACTIONS (2)
  - Death [Fatal]
  - Vasculitis [Unknown]
